FAERS Safety Report 5916280-7 (Version None)
Quarter: 2008Q4

REPORT INFORMATION
  Report Type: 
  Country: None (occurrence: None)
  Receive Date: 20081013
  Receipt Date: 20081003
  Transmission Date: 20090506
  Serious: Yes (Other)
  Sender: FDA-Public Use
  Company Number: PHHY2008GB23878

PATIENT
  Sex: Female

DRUGS (1)
  1. GLEEVEC [Suspect]
     Route: 048

REACTIONS (4)
  - BONE MARROW FAILURE [None]
  - MALAISE [None]
  - NEPHRITIS [None]
  - PROTEIN URINE PRESENT [None]
